FAERS Safety Report 18267122 (Version 1)
Quarter: 2020Q3

REPORT INFORMATION
  Report Type: Spontaneous
  Country: US (occurrence: US)
  Receive Date: 20200914
  Receipt Date: 20200914
  Transmission Date: 20201103
  Serious: No
  Sender: FDA-Public Use
  Company Number: None

PATIENT
  Age: 47 Year
  Sex: Female
  Weight: 97.2 kg

DRUGS (22)
  1. TRAMADOL 50MG [Concomitant]
     Active Substance: TRAMADOL
  2. ZOLPIDEM [Concomitant]
     Active Substance: ZOLPIDEM TARTRATE
  3. ISOSORBIDE MONONITRATE ER 30MG [Concomitant]
  4. VITAMIN B12  1000MCG/ML [Concomitant]
  5. TOPAMAX [Concomitant]
     Active Substance: TOPIRAMATE
  6. PROMETHAZINE 25MG [Concomitant]
  7. RANEXA 1000MG [Concomitant]
  8. HYDREA 500MG [Concomitant]
  9. DULOXETINE 60MG [Concomitant]
     Active Substance: DULOXETINE
  10. DIAZEPAM 10MG [Concomitant]
     Active Substance: DIAZEPAM
  11. CARTIA XT 120MG [Concomitant]
  12. GABAPENTIN 300MG [Concomitant]
     Active Substance: GABAPENTIN
  13. NITROGLYCERIN 0.4MG [Concomitant]
  14. PROCHLORPERAZINE 10MG [Concomitant]
  15. FUROSEMIDE 20MG [Concomitant]
     Active Substance: FUROSEMIDE
  16. PEGASYS [Suspect]
     Active Substance: PEGINTERFERON ALFA-2A
     Indication: ESSENTIAL THROMBOCYTHAEMIA
     Dosage: ?          OTHER FREQUENCY:ONCE WEEKLY;?
     Route: 058
     Dates: start: 20200714
  17. FIORICET 50?325?40MG [Concomitant]
  18. PANTOPRAZOLE 40MG [Concomitant]
     Active Substance: PANTOPRAZOLE SODIUM
  19. ZOFRAN [Concomitant]
     Active Substance: ONDANSETRON HYDROCHLORIDE
  20. HYDROXYZINE 25MG [Concomitant]
  21. ALBUTEROL HFA 90MCG [Concomitant]
  22. VIMPAT [Concomitant]
     Active Substance: LACOSAMIDE

REACTIONS (1)
  - Stomatitis [None]

NARRATIVE: CASE EVENT DATE: 20200914
